FAERS Safety Report 5504039-4 (Version None)
Quarter: 2007Q4

REPORT INFORMATION
  Report Type: 
  Country: None (occurrence: None)
  Receive Date: 20071101
  Receipt Date: 20071018
  Transmission Date: 20080405
  Serious: Yes (Hospitalization, Other)
  Sender: FDA-Public Use
  Company Number: AU-SOLVAY-00307034335

PATIENT
  Age: 83 Year
  Sex: Female

DRUGS (5)
  1. RANITIDINE [Concomitant]
     Indication: ILL-DEFINED DISORDER
     Dosage: DAILY DOSE:  UNKNOWN
     Route: 065
  2. PERINDOPRIL [Suspect]
     Indication: ILL-DEFINED DISORDER
     Dosage: DAILY DOSE:  UNKNOWN
     Route: 065
  3. DIPYRIDAMOLE [Concomitant]
     Indication: ILL-DEFINED DISORDER
     Dosage: DAILY DOSE:  UNKNOWN
     Route: 065
  4. BUPIVACAINE [Suspect]
     Indication: SPINAL ANAESTHESIA
     Dosage: DAILY DOSE: 2.5 MILLILITRE(S) AS A SINGLE SHOT SPINAL ANAESTHETIC TECHNIQUE
     Route: 065
     Dates: start: 20030101, end: 20030101
  5. ASPIRIN [Concomitant]
     Indication: ILL-DEFINED DISORDER
     Dosage: DAILY DOSE:  UNKNOWN
     Route: 065

REACTIONS (3)
  - FALL [None]
  - PARAPLEGIA [None]
  - PROCEDURAL HYPOTENSION [None]
